FAERS Safety Report 8976982 (Version 1)
Quarter: 2012Q4

REPORT INFORMATION
  Report Type: 
  Country: US (occurrence: US)
  Receive Date: 20121220
  Receipt Date: 20121220
  Transmission Date: 20130627
  Serious: No
  Sender: FDA-Public Use
  Company Number: US-GLAXOSMITHKLINE-A0970201A

PATIENT
  Sex: Male

DRUGS (1)
  1. SORIATANE [Suspect]
     Dosage: 10MG Per day
     Route: 048
     Dates: start: 20120312

REACTIONS (1)
  - Skin exfoliation [Unknown]
